FAERS Safety Report 19447474 (Version 8)
Quarter: 2021Q4

REPORT INFORMATION
  Report Type: Spontaneous
  Country: JP (occurrence: JP)
  Receive Date: 20210622
  Receipt Date: 20211008
  Transmission Date: 20220303
  Serious: Yes (Other)
  Sender: FDA-Public Use
  Company Number: JP-BEH-2021133045

PATIENT
  Age: 22 Year
  Sex: Female
  Weight: 65 kg

DRUGS (9)
  1. HIZENTRA [Suspect]
     Active Substance: HUMAN IMMUNOGLOBULIN G
     Indication: Chronic inflammatory demyelinating polyradiculoneuropathy
     Dosage: 24 GRAM, QW
     Route: 058
     Dates: start: 20210105, end: 20210610
  2. MINOPHAGEN C [CYSTEINE;GLYCINE;GLYCYRRHIZIC ACID] [Concomitant]
     Route: 065
  3. PREDNISONE [Concomitant]
     Active Substance: PREDNISONE
     Dosage: 10 MILLIGRAM, QD
     Dates: start: 20210813
  4. PREDNISONE [Concomitant]
     Active Substance: PREDNISONE
     Dosage: 15 MILLIGRAM, QD
     Dates: start: 20210827
  5. PRIVIGEN [Concomitant]
     Active Substance: HUMAN IMMUNOGLOBULIN G
     Dosage: UNK
     Route: 065
     Dates: start: 20200803, end: 20210618
  6. PRIVIGEN [Concomitant]
     Active Substance: HUMAN IMMUNOGLOBULIN G
     Dosage: 20 GRAM, QD
     Route: 065
     Dates: start: 20201021, end: 20201024
  7. PRIVIGEN [Concomitant]
     Active Substance: HUMAN IMMUNOGLOBULIN G
     Dosage: 40 GRAM, QD
     Route: 065
     Dates: start: 20201126
  8. PRIVIGEN [Concomitant]
     Active Substance: HUMAN IMMUNOGLOBULIN G
     Dosage: 60 GRAM, QD
     Route: 065
     Dates: start: 20201215
  9. PRIVIGEN [Concomitant]
     Active Substance: HUMAN IMMUNOGLOBULIN G
     Dosage: 20 GRAM, QD
     Route: 065
     Dates: start: 20210614, end: 20210618

REACTIONS (2)
  - Monoplegia [Not Recovered/Not Resolved]
  - Muscular weakness [Unknown]
